FAERS Safety Report 5787369-0 (Version None)
Quarter: 2008Q2

REPORT INFORMATION
  Report Type: 
  Country: None (occurrence: None)
  Receive Date: 20080623
  Receipt Date: 20080623
  Transmission Date: 20081010
  Serious: Yes (Hospitalization)
  Sender: FDA-Public Use
  Company Number: None

PATIENT
  Age: 35 Year
  Sex: Female
  Weight: 55 kg

DRUGS (13)
  1. VANCOMYCIN [Suspect]
     Indication: FEBRILE NEUTROPENIA
     Dosage: 1 GM Q12H IV BOLUS
     Route: 040
     Dates: start: 20071017, end: 20071020
  2. ZOSYN [Suspect]
     Indication: FEBRILE NEUTROPENIA
     Dosage: 4.5 GM Q6H IV BOLUS
     Route: 040
     Dates: start: 20071017, end: 20071224
  3. ACYCLOVIR SODIUM [Concomitant]
  4. ALLOPURINOL [Concomitant]
  5. DAPTOMYCIN [Concomitant]
  6. DOCUSATE-SENNA [Concomitant]
  7. LEVOFLOXACIN [Concomitant]
  8. METHYLPREDNISOLONE [Concomitant]
  9. METRONIDAZOLE HCL [Concomitant]
  10. MICAFUNGIN [Concomitant]
  11. PANTROPAZOLE [Concomitant]
  12. POSACONAZOLE [Concomitant]
  13. PREDNISONE TAB [Concomitant]

REACTIONS (1)
  - NEPHROPATHY TOXIC [None]
